FAERS Safety Report 9523144 (Version 1)
Quarter: 2013Q3

REPORT INFORMATION
  Report Type: Spontaneous
  Country: US (occurrence: US)
  Receive Date: 20130913
  Receipt Date: 20130913
  Transmission Date: 20140515
  Serious: No
  Sender: FDA-Public Use
  Company Number: US-JNJFOC-20130903402

PATIENT
  Sex: Female
  Weight: 90.72 kg

DRUGS (5)
  1. SANDOZ FENTANYL TRANSDERMAL SYSTEM [Suspect]
     Indication: PAIN
     Route: 062
  2. NAPROXEN SODIUM [Concomitant]
     Indication: PAIN
     Route: 048
  3. OXYCODONE [Concomitant]
     Indication: PAIN
     Route: 048
  4. ZANAFLEX [Concomitant]
     Indication: MUSCLE RELAXANT THERAPY
     Route: 048
  5. PAXIL [Concomitant]
     Indication: DEPRESSION
     Route: 048

REACTIONS (7)
  - Restlessness [Recovered/Resolved]
  - Drug withdrawal syndrome [Recovered/Resolved]
  - Anxiety [Recovered/Resolved]
  - Pruritus [Recovered/Resolved]
  - Drug ineffective [Not Recovered/Not Resolved]
  - Wrong technique in drug usage process [Not Recovered/Not Resolved]
  - Medication error [Not Recovered/Not Resolved]
